FAERS Safety Report 6735107-7 (Version None)
Quarter: 2010Q2

REPORT INFORMATION
  Report Type: 
  Country: None (occurrence: None)
  Receive Date: 20100521
  Receipt Date: 20100512
  Transmission Date: 20101027
  Serious: Yes (Other)
  Sender: FDA-Public Use
  Company Number: JP-JNJFOC-20100407578

PATIENT
  Age: 33 Year
  Sex: Female

DRUGS (6)
  1. CRAVIT [Suspect]
     Indication: PROPHYLAXIS
     Route: 048
  2. CRAVIT [Suspect]
     Route: 048
  3. CRAVIT [Suspect]
     Indication: PAIN IN JAW
     Route: 048
  4. CRAVIT [Suspect]
     Route: 048
  5. LOXONIN [Concomitant]
     Indication: PAIN IN JAW
     Route: 048
  6. VOLTAREN [Concomitant]
     Indication: PAIN IN JAW
     Route: 065

REACTIONS (6)
  - CONVULSION [None]
  - DIPLOPIA [None]
  - DIZZINESS [None]
  - FALL [None]
  - HEADACHE [None]
  - MUSCULAR WEAKNESS [None]
